FAERS Safety Report 5776863-4 (Version None)
Quarter: 2008Q2

REPORT INFORMATION
  Report Type: 
  Country: None (occurrence: None)
  Receive Date: 20080616
  Receipt Date: 20080603
  Transmission Date: 20081010
  Serious: Yes (Disabling)
  Sender: FDA-Public Use
  Company Number: SP01931

PATIENT
  Age: 59 Year
  Sex: Male

DRUGS (1)
  1. OSMOPREP (1.5 GRAM, TABLETS) [Suspect]
     Indication: PAIN
     Dosage: 1.5 GM, SINGLE DOSE, OPRAL
     Route: 048
     Dates: start: 20080531, end: 20080531

REACTIONS (5)
  - ABDOMINAL PAIN UPPER [None]
  - BACK PAIN [None]
  - MEDICATION ERROR [None]
  - NAUSEA [None]
  - WRONG DRUG ADMINISTERED [None]
